FAERS Safety Report 7720909-0 (Version None)
Quarter: 2011Q3

REPORT INFORMATION
  Report Type: 
  Country: None (occurrence: None)
  Receive Date: 20110825
  Receipt Date: 20110810
  Transmission Date: 20111222
  Serious: Yes (Hospitalization)
  Sender: FDA-Public Use
  Company Number: 15967367

PATIENT
  Age: 76 Year
  Sex: Male

DRUGS (8)
  1. ALLOPURINOL [Concomitant]
  2. SORAFENIB (SORAFENIB) [Concomitant]
  3. ZEFFIX (LAMIVUDINE) [Concomitant]
  4. LANOXIN [Concomitant]
  5. CALCIFEDIOL (CALCIFEDIOL) [Concomitant]
  6. COUMADIN [Suspect]
     Indication: ATRIAL FIBRILLATION
     Dosage: 1 DOSAGE FORM AS NECESSARY
     Route: 048
     Dates: start: 20100101, end: 20110429
  7. LASIX [Concomitant]
  8. IRBESARTAN [Concomitant]

REACTIONS (1)
  - CEREBRAL HAEMORRHAGE [None]
